FAERS Safety Report 7110136-2 (Version None)
Quarter: 2010Q4

REPORT INFORMATION
  Report Type: 
  Country: None (occurrence: None)
  Receive Date: 20101116
  Receipt Date: 20101116
  Transmission Date: 20110411
  Serious: Yes (Life-Threatening)
  Sender: FDA-Public Use
  Company Number: None

PATIENT
  Age: 19 Year
  Sex: Female
  Weight: 64 kg

DRUGS (2)
  1. ONDANSETRON HCL [Suspect]
     Indication: NAUSEA
     Dosage: 4 MG EVERY 6 HOURS IV
     Route: 042
     Dates: start: 20101101, end: 20101101
  2. ONDANSETRON HCL [Suspect]
     Indication: VOMITING
     Dosage: 4 MG EVERY 6 HOURS IV
     Route: 042
     Dates: start: 20101101, end: 20101101

REACTIONS (4)
  - CARDIO-RESPIRATORY ARREST [None]
  - PRURITUS [None]
  - STRIDOR [None]
  - WHEEZING [None]
